FAERS Safety Report 6983912-4 (Version None)
Quarter: 2010Q3

REPORT INFORMATION
  Report Type: 
  Country: None (occurrence: None)
  Receive Date: 20100914
  Receipt Date: 20090501
  Transmission Date: 20110219
  Serious: Yes (Hospitalization)
  Sender: FDA-Public Use
  Company Number: US-WYE-H09183709

PATIENT
  Sex: Female

DRUGS (2)
  1. TYGACIL [Suspect]
     Dosage: INKNOWN
  2. NICOTINAMIDE/PYRIDOXINE HYDROCHLORIDE/TYROSINE [Concomitant]
     Dosage: UNKNOWN

REACTIONS (1)
  - PANCREATITIS [None]
